FAERS Safety Report 22173203 (Version 1)
Quarter: 2023Q2

REPORT INFORMATION
  Report Type: Spontaneous
  Country: TH (occurrence: TH)
  Receive Date: 20230404
  Receipt Date: 20230404
  Transmission Date: 20230722
  Serious: Yes (Other)
  Sender: FDA-Public Use
  Company Number: TH-GUERBETG-TH-20230008

PATIENT
  Age: 70 Year
  Sex: Female

DRUGS (1)
  1. LIPIODOL [Suspect]
     Active Substance: ETHIODIZED OIL
     Indication: Transcatheter arterial chemoembolisation
     Route: 013

REACTIONS (3)
  - Gastric perforation [Unknown]
  - Haematoma [Unknown]
  - Ascites [Unknown]
